FAERS Safety Report 7345073-1 (Version None)
Quarter: 2011Q1

REPORT INFORMATION
  Report Type: 
  Country: None (occurrence: None)
  Receive Date: 20110310
  Receipt Date: 20110301
  Transmission Date: 20110831
  Serious: Yes (Hospitalization, Other)
  Sender: FDA-Public Use
  Company Number: US-ELI_LILLY_AND_COMPANY-US201009007167

PATIENT
  Sex: Female
  Weight: 72.018 kg

DRUGS (15)
  1. CYMBALTA [Concomitant]
     Dosage: 30 MG, DAILY (1/D)
  2. ASCORBIC ACID [Concomitant]
  3. FORTEO [Suspect]
     Dosage: 20 UG, DAILY (1/D)
  4. LEVOTHYROXINE [Concomitant]
     Dosage: 110 UG, DAILY (1/D)
  5. CALCIUM W/VITAMIN D NOS [Concomitant]
     Dosage: 1200 MG, DAILY (1/D)
  6. DIAZIDE [Concomitant]
     Dosage: UNK, DAILY (1/D)
  7. TRAMADOL [Concomitant]
     Indication: PAIN
     Dosage: UNK, EACH EVENING
  8. RESTASIS [Concomitant]
  9. PLAQUENIL [Concomitant]
     Indication: RHEUMATOID ARTHRITIS
     Dosage: UNK, 2/D
  10. FORTEO [Suspect]
     Indication: OSTEOPOROSIS
     Dosage: 20 UG, DAILY (1/D)
     Route: 030
     Dates: start: 20100903
  11. VITAMINS NOS [Concomitant]
  12. VITAMIN B-12 [Concomitant]
  13. MELATONIN [Concomitant]
  14. ASPIRIN [Concomitant]
     Dosage: 81 MG, UNK
  15. SYNTHROID [Concomitant]
     Dosage: 100 UG, UNKNOWN
     Route: 065

REACTIONS (5)
  - IMPAIRED HEALING [None]
  - JOINT DISLOCATION [None]
  - WHEELCHAIR USER [None]
  - INCORRECT ROUTE OF DRUG ADMINISTRATION [None]
  - FEMUR FRACTURE [None]
